FAERS Safety Report 9836206 (Version 1)
Quarter: 2014Q1

REPORT INFORMATION
  Report Type: Spontaneous
  Country: IN (occurrence: IN)
  Receive Date: 20140123
  Receipt Date: 20140123
  Transmission Date: 20141002
  Serious: Yes (Death, Other)
  Sender: FDA-Public Use
  Company Number: IN-MERCK-1401IND008141

PATIENT
  Sex: 0

DRUGS (2)
  1. VIRAFERONPEG [Suspect]
     Dosage: 8 INJECTIONS A 100 MICROGRAM
  2. REBETOL [Suspect]
     Route: 048

REACTIONS (1)
  - Myocardial infarction [Fatal]
